FAERS Safety Report 5351395-6 (Version None)
Quarter: 2007Q2

REPORT INFORMATION
  Report Type: 
  Country: None (occurrence: None)
  Receive Date: 20070608
  Receipt Date: 20070529
  Transmission Date: 20071010
  Serious: Yes (Other)
  Sender: FDA-Public Use
  Company Number: CA-PFIZER INC-2007045570

PATIENT
  Age: 75 Year
  Sex: Male

DRUGS (7)
  1. LIPITOR [Suspect]
     Indication: HYPERLIPIDAEMIA
     Route: 048
     Dates: start: 20060701, end: 20070501
  2. REMICADE [Concomitant]
     Route: 042
  3. AZATHIOPRINE [Concomitant]
     Dosage: TEXT:200 MG DAILY
  4. AVAPRO [Concomitant]
  5. FOSAMAX [Concomitant]
  6. ACETYLSALICYLIC ACID SRT [Concomitant]
     Route: 048
  7. VITAMIN D [Concomitant]

REACTIONS (3)
  - DYSSTASIA [None]
  - MUSCULAR WEAKNESS [None]
  - PAIN [None]
